FAERS Safety Report 17542815 (Version 1)
Quarter: 2020Q1

REPORT INFORMATION
  Report Type: Spontaneous
  Country: NL (occurrence: NL)
  Receive Date: 20200315
  Receipt Date: 20200315
  Transmission Date: 20200409
  Serious: Yes (Other)
  Sender: FDA-Public Use
  Company Number: NL-TEVA-2020-NL-1199922

PATIENT
  Sex: Male
  Weight: 88 kg

DRUGS (1)
  1. TAMSULOSINE [Suspect]
     Active Substance: TAMSULOSIN HYDROCHLORIDE
     Indication: POLLAKIURIA
     Dosage: DAILY, 1 TABLET
     Dates: start: 2019

REACTIONS (1)
  - Erectile dysfunction [Not Recovered/Not Resolved]
